FAERS Safety Report 6403162-X (Version None)
Quarter: 2009Q4

REPORT INFORMATION
  Report Type: 
  Country: None (occurrence: None)
  Receive Date: 20091016
  Receipt Date: 20091007
  Transmission Date: 20100525
  Serious: Yes (Hospitalization)
  Sender: FDA-Public Use
  Company Number: NZ-ASTRAZENECA-2009SE18757

PATIENT
  Age: 17513 Day
  Sex: Female

DRUGS (2)
  1. QUETIAPINE [Suspect]
     Indication: SCHIZOPHRENIA
     Route: 048
     Dates: start: 20031017, end: 20031017
  2. VALPROATE SODIUM [Concomitant]
     Indication: STATUS EPILEPTICUS
     Route: 048

REACTIONS (4)
  - ANAEMIA [None]
  - HEPATIC FUNCTION ABNORMAL [None]
  - HYPONATRAEMIA [None]
  - LEUKOCYTOSIS [None]
